FAERS Safety Report 5100569-8 (Version None)
Quarter: 2006Q3

REPORT INFORMATION
  Report Type: 
  Country: None (occurrence: None)
  Receive Date: 20060907
  Receipt Date: 20060907
  Transmission Date: 20061208
  Serious: Yes (Hospitalization)
  Sender: FDA-Public Use
  Company Number: None

PATIENT
  Age: 20 Year
  Sex: Female
  Weight: 51.2565 kg

DRUGS (1)
  1. MINOCYCLINE HCL [Suspect]
     Indication: ACNE
     Dosage: 100 MG BID
     Dates: start: 20060703, end: 20060804

REACTIONS (8)
  - BLOOD CALCIUM DECREASED [None]
  - CONVULSION [None]
  - DRUG INEFFECTIVE [None]
  - NEPHRITIS [None]
  - RASH ERYTHEMATOUS [None]
  - RASH GENERALISED [None]
  - RASH PAPULAR [None]
  - RENAL FAILURE ACUTE [None]
